FAERS Safety Report 10263107 (Version 2)
Quarter: 2014Q2

REPORT INFORMATION
  Report Type: Report from Study
  Country: US (occurrence: US)
  Receive Date: 20140626
  Receipt Date: 20140626
  Transmission Date: 20141212
  Serious: Yes (Life-Threatening, Other)
  Sender: FDA-Public Use
  Company Number: US-MYLANLABS-2014S1001691

PATIENT
  Age: 12 Year
  Sex: Male

DRUGS (5)
  1. CLOZAPINE TABLETS [Suspect]
     Indication: BIPOLAR DISORDER
     Route: 048
     Dates: start: 201311, end: 20140120
  2. CLOZAPINE TABLETS [Suspect]
     Indication: PSYCHOTIC DISORDER
     Route: 048
     Dates: start: 201311, end: 20140120
  3. PROZAC [Concomitant]
  4. LITHIUM [Concomitant]
  5. TENEX [Concomitant]

REACTIONS (5)
  - Agranulocytosis [Not Recovered/Not Resolved]
  - Granulocytopenia [Not Recovered/Not Resolved]
  - Leukopenia [Not Recovered/Not Resolved]
  - Pyrexia [Not Recovered/Not Resolved]
  - Viral infection [Not Recovered/Not Resolved]
